FAERS Safety Report 21783695 (Version 10)
Quarter: 2024Q1

REPORT INFORMATION
  Report Type: Spontaneous
  Country: US (occurrence: US)
  Receive Date: 20221227
  Receipt Date: 20240213
  Transmission Date: 20240409
  Serious: No
  Sender: FDA-Public Use
  Company Number: US-PFIZER INC-PV202200129544

PATIENT
  Age: 70 Year
  Sex: Female

DRUGS (4)
  1. IBRANCE [Suspect]
     Active Substance: PALBOCICLIB
     Indication: Breast cancer metastatic
     Dosage: 125 MG, CYCLIC (ONCE DAILY TAKEN WITH OR WITHOUT FOOD FOR 21 DAYS FOLLOWED BY 7 DAYS OFF TREATMENT)
     Route: 048
     Dates: start: 20210625
  2. IBRANCE [Suspect]
     Active Substance: PALBOCICLIB
     Dosage: 100 MG, CYCLIC (ONCE DAILY TAKEN WITH OR WITHOUT FOOD FOR 21 DAYS FOLLOWED BY 7 DAYS OFF TREATMENT)
     Route: 048
     Dates: start: 20211007
  3. IBRANCE [Suspect]
     Active Substance: PALBOCICLIB
     Dosage: 75 MG, CYCLIC (ONCE DAILY TAKEN WITH OR WITHOUT FOOD FOR 21 DAYS FOLLOWED BY 7 DAYS OFF TREATMENT)
     Route: 048
     Dates: start: 20221213
  4. AROMASIN [Concomitant]
     Active Substance: EXEMESTANE
     Dosage: UNK
     Route: 048

REACTIONS (2)
  - Neutrophil count decreased [Unknown]
  - White blood cell count decreased [Unknown]
